FAERS Safety Report 9779961 (Version 2)
Quarter: 2014Q1

REPORT INFORMATION
  Report Type: Spontaneous
  Country: US (occurrence: US)
  Receive Date: 20131223
  Receipt Date: 20140116
  Transmission Date: 20141002
  Serious: Yes (Other)
  Sender: FDA-Public Use
  Company Number: US-PFIZER INC-2013366190

PATIENT
  Age: 78 Year
  Sex: Female
  Weight: 63.49 kg

DRUGS (2)
  1. PROTONIX [Suspect]
     Indication: ANAEMIA
     Dosage: UNK (BY SPLITTING 80 MG TABLET IN TO HALF), 2X/DAY
     Dates: start: 2002
  2. PROTONIX [Suspect]
     Indication: HAEMORRHAGE

REACTIONS (2)
  - Pharyngeal haemorrhage [Recovered/Resolved]
  - Off label use [Unknown]
